FAERS Safety Report 7595319-X (Version None)
Quarter: 2011Q3

REPORT INFORMATION
  Report Type: 
  Country: None (occurrence: None)
  Receive Date: 20110707
  Receipt Date: 20110623
  Transmission Date: 20111222
  Serious: Yes (Other)
  Sender: FDA-Public Use
  Company Number: US-ELI_LILLY_AND_COMPANY-US201004005422

PATIENT
  Sex: Female

DRUGS (4)
  1. FORTEO [Suspect]
     Dosage: 20 UG, QD
     Route: 065
  2. FORTEO [Suspect]
     Dosage: 20 UG, QD
     Route: 065
  3. FORTEO [Suspect]
     Indication: OSTEOPOROSIS
     Dosage: 20 UG, DAILY (1/D)
     Route: 065
     Dates: start: 20091227
  4. COUMADIN [Concomitant]
     Dosage: UNK, UNKNOWN
     Route: 065

REACTIONS (9)
  - MUSCULAR WEAKNESS [None]
  - PAIN IN EXTREMITY [None]
  - NAUSEA [None]
  - BONE DENSITY DECREASED [None]
  - PAIN [None]
  - INJECTION SITE HAEMATOMA [None]
  - JOINT DISLOCATION [None]
  - HIP SURGERY [None]
  - VITAMIN D DECREASED [None]
